FAERS Safety Report 4987810-7 (Version None)
Quarter: 2006Q2

REPORT INFORMATION
  Report Type: 
  Country: None (occurrence: None)
  Receive Date: 20060424
  Receipt Date: 20060406
  Transmission Date: 20061013
  Serious: Yes (Life-Threatening, Hospitalization)
  Sender: FDA-Public Use
  Company Number: JP200603003151

PATIENT
  Age: 88 Year
  Sex: Female

DRUGS (1)
  1. EVISTA [Suspect]
     Indication: OSTEOPOROSIS POSTMENOPAUSAL
     Dosage: 6 MG, DAILY (1/D), ORAL
     Route: 048
     Dates: end: 20060305

REACTIONS (3)
  - CEREBRAL INFARCTION [None]
  - OSTEOPOROTIC FRACTURE [None]
  - SPINAL COMPRESSION FRACTURE [None]
